FAERS Safety Report 5506418-8 (Version None)
Quarter: 2007Q4

REPORT INFORMATION
  Report Type: 
  Country: None (occurrence: None)
  Receive Date: 20071101
  Receipt Date: 20071101
  Transmission Date: 20080405
  Serious: Yes (Hospitalization)
  Sender: FDA-Public Use
  Company Number: None

PATIENT
  Sex: Male
  Weight: 75.2971 kg

DRUGS (10)
  1. DOXIL [Suspect]
     Indication: PROSTATE CANCER
     Dosage: 56 MG   D 1 Q 28 D   IV DRIP
     Route: 041
     Dates: start: 20071015, end: 20071015
  2. TAXOTERE [Suspect]
     Indication: PROSTATE CANCER
     Dosage: 56 MG  D1,8,15 Q 28 D  IV DRIP
     Route: 041
     Dates: start: 20071015, end: 20071015
  3. DURAGESIC-100 [Concomitant]
  4. DULOCLAX [Concomitant]
  5. MORPHINE [Concomitant]
  6. LOTENSIN [Concomitant]
  7. ALPRAZOLAM [Concomitant]
  8. MICRONASE [Concomitant]
  9. FLOMAX [Concomitant]
  10. MOTRIN [Concomitant]

REACTIONS (7)
  - ASTHENIA [None]
  - DEHYDRATION [None]
  - FLUID INTAKE REDUCED [None]
  - HAEMOGLOBIN DECREASED [None]
  - NAUSEA [None]
  - ORAL INTAKE REDUCED [None]
  - VOMITING [None]
